FAERS Safety Report 12327655 (Version 1)
Quarter: 2016Q2

REPORT INFORMATION
  Report Type: Spontaneous
  Country: CH (occurrence: CH)
  Receive Date: 20160503
  Receipt Date: 20160503
  Transmission Date: 20160815
  Serious: Yes (Hospitalization, Other)
  Sender: FDA-Public Use
  Company Number: CH-ELI_LILLY_AND_COMPANY-CH201604008303

PATIENT
  Age: 74 Year
  Sex: Female

DRUGS (17)
  1. CYMBALTA [Suspect]
     Active Substance: DULOXETINE HYDROCHLORIDE
     Indication: DEPRESSION
     Dosage: 60 MG, QD
     Route: 048
  2. TRAMAL [Concomitant]
     Active Substance: TRAMADOL
     Dosage: 50 MG, PRN
     Route: 065
  3. PASPERTIN                          /00041902/ [Concomitant]
     Active Substance: METOCLOPRAMIDE HYDROCHLORIDE
     Dosage: 10 MG, PRN
     Route: 065
  4. QUETIAPIN [Interacting]
     Active Substance: QUETIAPINE
     Indication: ANXIETY
     Dosage: 12.5 MG, QD
     Route: 048
     Dates: start: 20160223
  5. TEMESTA                            /00273201/ [Concomitant]
     Active Substance: LORAZEPAM
     Dosage: 3 MG, QD
     Route: 048
  6. XARELTO [Concomitant]
     Active Substance: RIVAROXABAN
     Dosage: 20 MG, QD
     Route: 048
  7. FICUS CARICA EXTRACT W/SORBITOL [Concomitant]
     Dosage: 30 ML, QD
     Route: 048
  8. CORDARONE [Interacting]
     Active Substance: AMIODARONE HYDROCHLORIDE
     Indication: ATRIAL FIBRILLATION
     Dosage: 200 MG, QD
     Route: 048
     Dates: start: 20160210
  9. CALCIMAGON D3 [Concomitant]
     Active Substance: CALCIUM\CHOLECALCIFEROL
     Dosage: 1 DF, BID
     Route: 048
  10. MOTILIUM [Concomitant]
     Active Substance: DOMPERIDONE
     Dosage: UNK
  11. MG5 ORALEFF [Concomitant]
     Dosage: 12 MMOL, QD
     Route: 048
  12. CIPRALEX [Concomitant]
     Active Substance: ESCITALOPRAM OXALATE
     Dosage: 20 MG, QD
     Route: 065
  13. QUETIAPIN [Interacting]
     Active Substance: QUETIAPINE
     Dosage: 25 MG, QD
     Route: 048
     Dates: start: 20160312, end: 20160401
  14. DAFALGAN [Concomitant]
     Active Substance: ACETAMINOPHEN
     Dosage: 1 G, TID
     Route: 048
  15. LAXOBERON [Concomitant]
     Active Substance: SODIUM PICOSULFATE
     Dosage: 5 MG, QD
     Route: 065
  16. RIVOTRIL [Concomitant]
     Active Substance: CLONAZEPAM
     Dosage: 1.0 MG (2X 0.5 MG), QD
     Route: 065
  17. MST CONTINUS [Concomitant]
     Active Substance: MORPHINE SULFATE
     Dosage: 10 MG, BID
     Route: 048

REACTIONS (11)
  - Electrocardiogram QT prolonged [Recovering/Resolving]
  - Cardiac failure [Unknown]
  - Acetabulum fracture [Unknown]
  - Anxiety [Unknown]
  - Femur fracture [Unknown]
  - Haemodynamic instability [Unknown]
  - Hypothyroidism [Unknown]
  - Pubis fracture [Unknown]
  - Drug interaction [Unknown]
  - Atrial fibrillation [Unknown]
  - Atrial fibrillation [Unknown]

NARRATIVE: CASE EVENT DATE: 201601
